FAERS Safety Report 4885694-9 (Version None)
Quarter: 2005Q4

REPORT INFORMATION
  Report Type: 
  Country: None (occurrence: None)
  Receive Date: 20051220
  Receipt Date: 20050602
  Transmission Date: 20060501
  Serious: Yes (Hospitalization, Other)
  Sender: FDA-Public Use
  Company Number: HQWYE285006JUN05

PATIENT
  Age: 68 Year
  Sex: Male
  Weight: 118.04 kg

DRUGS (5)
  1. EFFEXOR XR [Suspect]
     Indication: DEPRESSION
     Dosage: 150 MG 2X PER 1 DAY, ORAL
     Route: 048
     Dates: start: 20050101
  2. VASOTEC [Concomitant]
  3. SEROQUEL [Concomitant]
  4. REMERON [Concomitant]
  5. LASIX [Concomitant]

REACTIONS (1)
  - CARDIAC FAILURE CONGESTIVE [None]
